FAERS Safety Report 6317660-0 (Version None)
Quarter: 2009Q3

REPORT INFORMATION
  Report Type: 
  Country: None (occurrence: None)
  Receive Date: 20090820
  Receipt Date: 20090820
  Transmission Date: 20100115
  Serious: Yes (Life-Threatening, Hospitalization)
  Sender: FDA-Public Use
  Company Number: None

PATIENT
  Age: 45 Year
  Sex: Male
  Weight: 107.5025 kg

DRUGS (1)
  1. ZOLPIDEM [Suspect]
     Indication: SLEEP DISORDER
     Dosage: 10MG 1X/DAY PO
     Route: 048
     Dates: start: 20090428, end: 20090728

REACTIONS (4)
  - AMNESIA [None]
  - PAIN [None]
  - ROAD TRAFFIC ACCIDENT [None]
  - SOMNAMBULISM [None]
